FAERS Safety Report 20895672 (Version 1)
Quarter: 2022Q2

REPORT INFORMATION
  Report Type: Spontaneous
  Country: GB (occurrence: GB)
  Receive Date: 20220531
  Receipt Date: 20220531
  Transmission Date: 20220721
  Serious: Yes (Other)
  Sender: FDA-Public Use
  Company Number: GB-PFIZER INC-2021689600

PATIENT
  Age: 78 Year
  Sex: Female

DRUGS (2)
  1. ATORVASTATIN [Suspect]
     Active Substance: ATORVASTATIN
     Indication: Blood cholesterol increased
     Dosage: UNK
  2. TOZINAMERAN [Suspect]
     Active Substance: TOZINAMERAN
     Indication: COVID-19 immunisation
     Dosage: UNK, TOTAL (UNK, DOSE 1, SINGLE)

REACTIONS (14)
  - Retinal detachment [Unknown]
  - Neovascular age-related macular degeneration [Unknown]
  - Dry age-related macular degeneration [Unknown]
  - Cataract [Unknown]
  - Vitreous detachment [Unknown]
  - Visual impairment [Unknown]
  - Toothache [Unknown]
  - Trigeminal neuralgia [Unknown]
  - Weight decreased [Unknown]
  - Spinal disorder [Unknown]
  - Facial pain [Unknown]
  - Breast pain [Unknown]
  - Somnolence [Recovered/Resolved]
  - Fatigue [Recovered/Resolved]

NARRATIVE: CASE EVENT DATE: 20200101
